FAERS Safety Report 7463349-4 (Version None)
Quarter: 2011Q2

REPORT INFORMATION
  Report Type: 
  Country: None (occurrence: None)
  Receive Date: 20110506
  Receipt Date: 20110504
  Transmission Date: 20111010
  Serious: Yes (Death)
  Sender: FDA-Public Use
  Company Number: US-PFIZER INC-US-WYE-H13726710

PATIENT
  Age: 30 Year
  Sex: Female

DRUGS (3)
  1. IBUPROFEN [Suspect]
     Dosage: UNK
     Route: 065
     Dates: start: 20080101, end: 20080101
  2. FENTANYL [Suspect]
     Dosage: UNK
     Route: 062
  3. PIROXICAM [Suspect]
     Dosage: UNK
     Route: 065

REACTIONS (1)
  - DEATH [None]
